FAERS Safety Report 10709865 (Version 1)
Quarter: 2015Q1

REPORT INFORMATION
  Report Type: Spontaneous
  Country: US (occurrence: None)
  Receive Date: 20150113
  Receipt Date: 20150113
  Transmission Date: 20150721
  Serious: Yes (Hospitalization)
  Sender: FDA-Public Use
  Company Number: None

PATIENT
  Age: 83 Year
  Sex: Male
  Weight: 64.86 kg

DRUGS (15)
  1. DECADRON [Concomitant]
     Active Substance: DEXAMETHASONE
  2. DILAUDID [Concomitant]
     Active Substance: HYDROMORPHONE HYDROCHLORIDE
  3. CYRAMZA [Suspect]
     Active Substance: RAMUCIRUMAB
     Indication: LUNG NEOPLASM MALIGNANT
     Route: 042
     Dates: start: 20150105, end: 20150105
  4. LIPITOR [Concomitant]
     Active Substance: ATORVASTATIN CALCIUM
  5. NORVASC [Concomitant]
     Active Substance: AMLODIPINE BESYLATE
  6. XGEVA [Concomitant]
     Active Substance: DENOSUMAB
  7. PEPCID [Concomitant]
     Active Substance: FAMOTIDINE
  8. HYTRIN [Concomitant]
     Active Substance: TERAZOSIN HYDROCHLORIDE
  9. OLANZEPINE [Concomitant]
     Active Substance: OLANZAPINE
  10. ASA [Concomitant]
     Active Substance: ASPIRIN
  11. METOPROLOL [Concomitant]
     Active Substance: METOPROLOL
  12. TAXOTERE [Concomitant]
     Active Substance: DOCETAXEL
  13. TYLENOL [Concomitant]
     Active Substance: ACETAMINOPHEN
  14. CHLOR KON [Concomitant]
  15. LATANOPROST. [Concomitant]
     Active Substance: LATANOPROST

REACTIONS (2)
  - Myocardial infarction [None]
  - Transient ischaemic attack [None]

NARRATIVE: CASE EVENT DATE: 20150106
